FAERS Safety Report 26060414 (Version 1)
Quarter: 2025Q4

REPORT INFORMATION
  Report Type: Spontaneous
  Country: US (occurrence: US)
  Receive Date: 20251118
  Receipt Date: 20251118
  Transmission Date: 20260118
  Serious: No
  Sender: SANOFI AVENTIS
  Company Number: US-SA-2025SA342241

PATIENT
  Sex: Male

DRUGS (10)
  1. DUPIXENT [Suspect]
     Active Substance: DUPILUMAB
     Indication: Asthma
     Dosage: 300 MG, QOW
     Route: 058
     Dates: start: 20191109
  2. ADDERALL [Concomitant]
     Active Substance: AMPHETAMINE ASPARTATE\AMPHETAMINE SULFATE\DEXTROAMPHETAMINE SACCHARATE\DEXTROAMPHETAMINE SULFATE
  3. ALPRAZOLAM [Concomitant]
     Active Substance: ALPRAZOLAM
  4. BROVANA [Concomitant]
     Active Substance: ARFORMOTEROL TARTRATE
  5. CYMBALTA [Concomitant]
     Active Substance: DULOXETINE HYDROCHLORIDE
  6. FLUTICASONE [Concomitant]
     Active Substance: FLUTICASONE
  7. LISINOPRIL [Concomitant]
     Active Substance: LISINOPRIL
  8. MELOXICAM [Concomitant]
     Active Substance: MELOXICAM
  9. OMEPRAZOLE [Concomitant]
     Active Substance: OMEPRAZOLE
  10. VENTOLIN HFA [Concomitant]
     Active Substance: ALBUTEROL SULFATE

REACTIONS (2)
  - Tooth infection [Unknown]
  - Drug ineffective [Unknown]
